FAERS Safety Report 11833065 (Version 2)
Quarter: 2016Q1

REPORT INFORMATION
  Report Type: Spontaneous
  Country: US (occurrence: US)
  Receive Date: 20151214
  Receipt Date: 20160115
  Transmission Date: 20160525
  Serious: Yes (Death, Hospitalization, Other)
  Sender: FDA-Public Use
  Company Number: US-ASTRAZENECA-2015SF23687

PATIENT
  Age: 77 Year
  Sex: Male
  Weight: 54.4 kg

DRUGS (4)
  1. BABY ASPIRIN [Concomitant]
     Active Substance: ASPIRIN
     Dosage: DAILY
     Route: 065
     Dates: start: 2006
  2. OMEPRAZOLE. [Suspect]
     Active Substance: OMEPRAZOLE
     Indication: ABDOMINAL DISCOMFORT
     Route: 048
  3. BRILINTA [Suspect]
     Active Substance: TICAGRELOR
     Indication: STENT PLACEMENT
     Route: 048
     Dates: start: 201502
  4. BRILINTA [Suspect]
     Active Substance: TICAGRELOR
     Indication: ACUTE CORONARY SYNDROME
     Route: 048
     Dates: start: 201502

REACTIONS (13)
  - Cough [Unknown]
  - Weight decreased [Unknown]
  - Gastric cancer [Unknown]
  - Brain cancer metastatic [Not Recovered/Not Resolved]
  - Haemorrhage [Unknown]
  - Pneumonia [Unknown]
  - Myocardial infarction [Unknown]
  - Blood glucose increased [Unknown]
  - Adenoid cystic carcinoma [Fatal]
  - Abdominal discomfort [Unknown]
  - Eating disorder [Unknown]
  - Vomiting [Unknown]
  - Off label use [Unknown]

NARRATIVE: CASE EVENT DATE: 2015
